FAERS Safety Report 20980306 (Version 2)
Quarter: 2022Q2

REPORT INFORMATION
  Report Type: Report from Study
  Country: US (occurrence: US)
  Receive Date: 20220620
  Receipt Date: 20220621
  Transmission Date: 20220721
  Serious: Yes (Disabling)
  Sender: FDA-Public Use
  Company Number: US-JNJFOC-20220633449

PATIENT
  Age: 23 Year
  Sex: Female
  Weight: 65.830 kg

DRUGS (1)
  1. INFLIXIMAB [Suspect]
     Active Substance: INFLIXIMAB
     Indication: Inflammatory bowel disease
     Route: 041
     Dates: start: 20090511

REACTIONS (1)
  - Ehlers-Danlos syndrome [Not Recovered/Not Resolved]

NARRATIVE: CASE EVENT DATE: 20210204
